FAERS Safety Report 7968614-X (Version None)
Quarter: 2011Q4

REPORT INFORMATION
  Report Type: 
  Country: None (occurrence: None)
  Receive Date: 20111209
  Receipt Date: 20111130
  Transmission Date: 20120403
  Serious: Yes (Hospitalization)
  Sender: FDA-Public Use
  Company Number: CZ-JNJFOC-20111201260

PATIENT
  Sex: Female

DRUGS (3)
  1. METHOTREXATE [Concomitant]
  2. REMICADE [Suspect]
     Indication: RHEUMATOID ARTHRITIS
     Route: 042
     Dates: start: 20110317, end: 20111130
  3. FOLIC ACID [Concomitant]

REACTIONS (1)
  - GLIOBLASTOMA [None]
